FAERS Safety Report 7302014-0 (Version None)
Quarter: 2011Q1

REPORT INFORMATION
  Report Type: 
  Country: None (occurrence: None)
  Receive Date: 20110218
  Receipt Date: 20110209
  Transmission Date: 20110831
  Serious: Yes (Hospitalization)
  Sender: FDA-Public Use
  Company Number: US-ASTRAZENECA-2011SE07961

PATIENT
  Age: 42 Year
  Sex: Female

DRUGS (1)
  1. SYMBICORT [Suspect]
     Indication: ASTHMA
     Dosage: 160/4.5MCG, DAILY
     Route: 055

REACTIONS (2)
  - DRUG DOSE OMISSION [None]
  - MALAISE [None]
